FAERS Safety Report 6540878-9 (Version None)
Quarter: 2010Q1

REPORT INFORMATION
  Report Type: 
  Country: None (occurrence: None)
  Receive Date: 20100118
  Receipt Date: 20100112
  Transmission Date: 20100710
  Serious: Yes (Death)
  Sender: FDA-Public Use
  Company Number: PHEH2010US00676

PATIENT
  Sex: Female
  Weight: 59.864 kg

DRUGS (13)
  1. EXJADE [Suspect]
     Indication: IRON OVERLOAD
     Dosage: 1500 MG, QD
     Route: 048
     Dates: start: 20080207, end: 20091220
  2. EXJADE [Suspect]
     Indication: SERUM FERRITIN INCREASED
  3. EXJADE [Suspect]
     Indication: MULTIPLE MYELOMA
  4. VITAMIN C [Concomitant]
  5. TRAVATAN [Concomitant]
  6. PROTONIX [Concomitant]
  7. ATENOLOL [Concomitant]
  8. OXYCODONE [Concomitant]
  9. OXYCONTIN [Concomitant]
  10. PREDNISONE [Concomitant]
  11. DECADRON                                /CAN/ [Concomitant]
  12. RADIATION [Concomitant]
  13. THALIDOMIDE [Concomitant]

REACTIONS (5)
  - BONE LESION [None]
  - CARDIAC FAILURE CONGESTIVE [None]
  - IRON OVERLOAD [None]
  - MALIGNANT NEOPLASM PROGRESSION [None]
  - MULTIPLE MYELOMA [None]
